FAERS Safety Report 7171598-8 (Version None)
Quarter: 2010Q4

REPORT INFORMATION
  Report Type: 
  Country: None (occurrence: None)
  Receive Date: 20101217
  Receipt Date: 20100203
  Transmission Date: 20110411
  Serious: No
  Sender: FDA-Public Use
  Company Number: US-AMGEN-KDL390493

PATIENT

DRUGS (2)
  1. ENBREL [Suspect]
     Indication: ANKYLOSING SPONDYLITIS
     Dosage: UNK UNK, UNK
     Dates: start: 20061114
  2. SULFASALAZINE [Concomitant]
     Dosage: UNK UNK, UNK

REACTIONS (2)
  - ANKYLOSING SPONDYLITIS [None]
  - THERAPEUTIC RESPONSE DECREASED [None]
